FAERS Safety Report 8849772 (Version 1)
Quarter: 2012Q4

REPORT INFORMATION
  Report Type: 
  Country: JP (occurrence: JP)
  Receive Date: 20121019
  Receipt Date: 20121019
  Transmission Date: 20130627
  Serious: Yes (Other)
  Sender: FDA-Public Use
  Company Number: PHHY2012JP081767

PATIENT
  Sex: Male

DRUGS (2)
  1. DESFERAL [Suspect]
     Indication: IRON OVERLOAD
     Dosage: 500 mg (five days per week (from Monday to Friday)
     Route: 030
     Dates: start: 20120522
  2. DESFERAL [Suspect]
     Dosage: 500 mg (to 3 days per week.)
     Route: 030
     Dates: start: 20120913

REACTIONS (1)
  - Osteoporosis [Not Recovered/Not Resolved]
